FAERS Safety Report 16684600 (Version 3)
Quarter: 2019Q3

REPORT INFORMATION
  Report Type: Spontaneous
  Country: DE (occurrence: DE)
  Receive Date: 20190808
  Receipt Date: 20190823
  Transmission Date: 20191004
  Serious: Yes (Death, Hospitalization, Other)
  Sender: FDA-Public Use
  Company Number: DE-PFIZER INC-2019335985

PATIENT
  Sex: Female
  Weight: 88 kg

DRUGS (4)
  1. TAXOL [Suspect]
     Active Substance: PACLITAXEL
     Indication: BREAST CANCER FEMALE
     Dosage: 4X TAXOL DAY1, DAY8, DAY15 EVERY 28 DAYS
     Dates: start: 201501, end: 201507
  2. CYCLOPHOSPHAMIDE. [Suspect]
     Active Substance: CYCLOPHOSPHAMIDE
     Indication: BREAST CANCER RECURRENT
     Dosage: 600 MG/M2, (EVERY 21 DAYS (3X IN TOTAL))
     Route: 042
     Dates: start: 201501, end: 201507
  3. LETROZOLE. [Suspect]
     Active Substance: LETROZOLE
     Indication: BREAST CANCER RECURRENT
     Dosage: 2.5 MG, 1X/DAY
     Route: 048
     Dates: start: 201507, end: 201806
  4. EPIRUBICIN HCL [Suspect]
     Active Substance: EPIRUBICIN HYDROCHLORIDE
     Dosage: 90 MG/M2, (EVERY 21 DAYS (3X IN TOTAL))
     Route: 042
     Dates: start: 201501, end: 201507

REACTIONS (36)
  - Lymphadenopathy [Unknown]
  - Blood lactate dehydrogenase increased [Unknown]
  - Blood gases abnormal [Unknown]
  - Arthralgia [Unknown]
  - Soft tissue inflammation [Unknown]
  - C-reactive protein increased [Unknown]
  - Cardiogenic shock [Fatal]
  - Atrioventricular block [Unknown]
  - Reflux laryngitis [Unknown]
  - Pneumonia [Fatal]
  - Left ventricular dilatation [Unknown]
  - Left atrial dilatation [Unknown]
  - Lymphatic obstruction [Unknown]
  - Chest discomfort [Fatal]
  - Acute myocardial infarction [Fatal]
  - Tachycardia [Fatal]
  - Dyspnoea [Fatal]
  - Blood creatinine increased [Unknown]
  - Aspartate aminotransferase increased [Unknown]
  - Musculoskeletal deformity [Unknown]
  - Arteriosclerosis coronary artery [Unknown]
  - Hepatic steatosis [Unknown]
  - Blood glucose increased [Unknown]
  - Vomiting [Fatal]
  - Blood creatine phosphokinase MB increased [Unknown]
  - Pericardial effusion [Unknown]
  - Blood creatine phosphokinase increased [Unknown]
  - Aortic arteriosclerosis [Unknown]
  - Laryngeal oedema [Unknown]
  - Troponin I increased [Unknown]
  - Neoplasm progression [Unknown]
  - Nausea [Fatal]
  - Hypotension [Fatal]
  - Left ventricular failure [Unknown]
  - General physical health deterioration [Unknown]
  - Fibrin D dimer increased [Unknown]

NARRATIVE: CASE EVENT DATE: 201902
